FAERS Safety Report 26152597 (Version 1)
Quarter: 2025Q4

REPORT INFORMATION
  Report Type: Spontaneous
  Country: US (occurrence: US)
  Receive Date: 20251214
  Receipt Date: 20251214
  Transmission Date: 20260118
  Serious: No
  Sender: Atnahs Healthcare
  Company Number: US-ATNAHS-2025-PMNV-US000796

PATIENT

DRUGS (1)
  1. VALIUM [Suspect]
     Active Substance: DIAZEPAM
     Indication: Intervertebral disc degeneration
     Dosage: 10 MG, DAILY TOOK VALIUM AT NIGHT TIME
     Route: 065

REACTIONS (2)
  - Product use in unapproved indication [Unknown]
  - Withdrawal syndrome [Unknown]
